FAERS Safety Report 5878409-9 (Version None)
Quarter: 2008Q3

REPORT INFORMATION
  Report Type: 
  Country: None (occurrence: None)
  Receive Date: 20080911
  Receipt Date: 20080909
  Transmission Date: 20090109
  Serious: Yes (Death)
  Sender: FDA-Public Use
  Company Number: US-BAXTER-2008BH009523

PATIENT
  Age: 42 Year
  Sex: Male

DRUGS (1)
  1. HEPARIN SODIUM INJECTION [Suspect]
     Indication: DEEP VEIN THROMBOSIS
     Dosage: DOSE UNIT:UNKNOWN
     Route: 065
     Dates: start: 20071001

REACTIONS (1)
  - DEATH [None]
